FAERS Safety Report 25197887 (Version 1)
Quarter: 2025Q2

REPORT INFORMATION
  Report Type: Spontaneous
  Country: GB (occurrence: GB)
  Receive Date: 20250415
  Receipt Date: 20250415
  Transmission Date: 20250716
  Serious: Yes (Other)
  Sender: AUROBINDO
  Company Number: GB-MHRA-EMIS-143019-97770bb3-c648-402c-b8b2-f0f3b92c2126

PATIENT
  Age: 71 Year
  Sex: Female
  Weight: 78 kg

DRUGS (1)
  1. ROSUVASTATIN CALCIUM [Suspect]
     Active Substance: ROSUVASTATIN CALCIUM
     Indication: Product used for unknown indication
     Dosage: HALF A TABLET, ONCE A DAY AT NIGHT
     Route: 065
     Dates: start: 20250219, end: 20250331

REACTIONS (1)
  - Muscle spasms [Recovered/Resolved]
